FAERS Safety Report 8382043-9 (Version None)
Quarter: 2012Q2

REPORT INFORMATION
  Report Type: 
  Country: None (occurrence: None)
  Receive Date: 20120522
  Receipt Date: 20120508
  Transmission Date: 20120825
  Serious: Yes (Hospitalization)
  Sender: FDA-Public Use
  Company Number: GB-DEXPHARM-20120526

PATIENT
  Age: 5 Year
  Sex: Female

DRUGS (5)
  1. CHLORHEXIDINE GLUCONATE [Suspect]
     Indication: DERMATITIS ATOPIC
  2. EMULSIFYING WAX [Suspect]
     Indication: DERMATITIS ATOPIC
  3. LIQUID PARAFFIN [Suspect]
     Indication: DERMATITIS ATOPIC
  4. YELLOW SOFT PARAFFIN [Suspect]
     Indication: DERMATITIS ATOPIC
  5. BENZALKONIUM CHLORIDE [Suspect]
     Indication: DERMATITIS ATOPIC

REACTIONS (6)
  - RASH ERYTHEMATOUS [None]
  - POOR QUALITY DRUG ADMINISTERED [None]
  - DRUG INEFFECTIVE [None]
  - PSEUDOMONAS INFECTION [None]
  - SKIN BACTERIAL INFECTION [None]
  - PRODUCT CONTAMINATION MICROBIAL [None]
